FAERS Safety Report 7892907-8 (Version None)
Quarter: 2011Q4

REPORT INFORMATION
  Report Type: 
  Country: None (occurrence: None)
  Receive Date: 20111104
  Receipt Date: 20111031
  Transmission Date: 20120403
  Serious: Yes (Death, Other)
  Sender: FDA-Public Use
  Company Number: DK-PFIZER INC-2011266562

PATIENT
  Age: 72 Year
  Sex: Female

DRUGS (10)
  1. MIRTAZAPINE [Suspect]
     Indication: SCHIZOAFFECTIVE DISORDER
     Dosage: 30 MG, DAILY
     Route: 048
     Dates: end: 20111023
  2. ALPRAZOLAM [Concomitant]
     Dosage: UNK
  3. LITHIUM CITRATE [Suspect]
     Indication: SCHIZOAFFECTIVE DISORDER
     Dosage: DOSE: 1+0+0+1.5, STRENGTH: 6 MMOL LI+
     Route: 048
     Dates: end: 20111023
  4. FUROSEMIDE [Concomitant]
     Dosage: UNK
  5. ESCITALOPRAM [Suspect]
     Indication: SCHIZOAFFECTIVE DISORDER
     Dosage: 30 MG, DAILY
     Route: 048
     Dates: end: 20111023
  6. FERRO DURETTER [Concomitant]
     Dosage: UNK
  7. AMLODIPINE [Concomitant]
     Dosage: UNK
  8. FRAGMIN [Concomitant]
     Dosage: UNK
  9. ZIPRASIDONE HYDROCHLORIDE [Suspect]
     Indication: SCHIZOAFFECTIVE DISORDER
     Dosage: 40 MG, 2X/DAY
     Route: 048
     Dates: end: 20111023
  10. CENTYL MED KALIUMKLORID [Concomitant]
     Dosage: UNK

REACTIONS (10)
  - RENAL FAILURE [None]
  - PYREXIA [None]
  - OSTEOSYNTHESIS [None]
  - RHABDOMYOLYSIS [None]
  - NEUROLEPTIC MALIGNANT SYNDROME [None]
  - HUMERUS FRACTURE [None]
  - DYSPNOEA [None]
  - ORGAN FAILURE [None]
  - LACTIC ACIDOSIS [None]
  - FALL [None]
